FAERS Safety Report 6186897-6 (Version None)
Quarter: 2009Q2

REPORT INFORMATION
  Report Type: 
  Country: None (occurrence: None)
  Receive Date: 20090512
  Receipt Date: 20090415
  Transmission Date: 20091009
  Serious: No
  Sender: FDA-Public Use
  Company Number: US-BAYER-200918433NA

PATIENT
  Age: 23 Year
  Sex: Female
  Weight: 61 kg

DRUGS (2)
  1. MIRENA [Suspect]
     Indication: CONTRACEPTION
     Dosage: CONTINUOUS
     Route: 015
     Dates: start: 20060512
  2. TYLENOL [Concomitant]

REACTIONS (2)
  - MUSCLE SPASMS [None]
  - PREGNANCY WITH CONTRACEPTIVE DEVICE [None]
